FAERS Safety Report 4524413-2 (Version None)
Quarter: 2004Q4

REPORT INFORMATION
  Report Type: 
  Country: None (occurrence: None)
  Receive Date: 20041117
  Receipt Date: 20031216
  Transmission Date: 20050328
  Serious: Yes (Hospitalization, Other)
  Sender: FDA-Public Use
  Company Number: SUS1-2003-00524

PATIENT
  Age: 2 Year
  Sex: Female

DRUGS (1)
  1. CARBATROL [Suspect]
     Indication: CONVULSION
     Dosage: 700 MG DAILY, ORAL
     Route: 048
     Dates: start: 20030301, end: 20031207

REACTIONS (2)
  - CONVULSION [None]
  - HYPONATRAEMIA [None]
